FAERS Safety Report 5211479-X (Version None)
Quarter: 2006Q4

REPORT INFORMATION
  Report Type: 
  Country: None (occurrence: None)
  Receive Date: 20061115
  Receipt Date: 20060721
  Transmission Date: 20070319
  Serious: No
  Sender: FDA-Public Use
  Company Number: 200614804BWH

PATIENT
  Age: 66 Year
  Sex: Male

DRUGS (3)
  1. NEXAVAR [Suspect]
     Indication: RENAL CELL CARCINOMA STAGE UNSPECIFIED
     Dosage: 400 MG, BID ORAL
     Route: 048
     Dates: start: 20060601
  2. SUGAR PILLS (NOS) [Concomitant]
  3. HEART PILL (NOS) [Concomitant]

REACTIONS (1)
  - NERVOUSNESS [None]
